FAERS Safety Report 14821667 (Version 1)
Quarter: 2018Q2

REPORT INFORMATION
  Report Type: Spontaneous
  Country: US (occurrence: US)
  Receive Date: 20180427
  Receipt Date: 20180427
  Transmission Date: 20180711
  Serious: No
  Sender: FDA-Public Use
  Company Number: US-ELI_LILLY_AND_COMPANY-US201804010712

PATIENT
  Age: 57 Year
  Sex: Female

DRUGS (24)
  1. BROMPHENIRAMINE MALEATE W/PSEUDOEPHEDRINE HYD [Concomitant]
     Dosage: UNK, UNKNOWN
     Route: 065
  2. ADCIRCA [Suspect]
     Active Substance: TADALAFIL
     Indication: PRODUCT USED FOR UNKNOWN INDICATION
     Dosage: 20 MG, UNKNOWN
     Route: 065
  3. ESTRADIOL. [Concomitant]
     Active Substance: ESTRADIOL
     Dosage: UNK, UNKNOWN
     Route: 065
  4. PENTOXIFYLLIN [Concomitant]
     Active Substance: PENTOXIFYLLINE
     Dosage: UNK, UNKNOWN
     Route: 065
  5. PREDNISONE. [Concomitant]
     Active Substance: PREDNISONE
     Dosage: UNK, UNKNOWN
     Route: 065
  6. HYDROCODONE BITARTRATE AND ACETAMINOPHEN [Concomitant]
     Active Substance: ACETAMINOPHEN\HYDROCODONE BITARTRATE
     Dosage: UNK, UNKNOWN
     Route: 065
  7. PANTOPRAZOLE [Concomitant]
     Active Substance: PANTOPRAZOLE
     Dosage: UNK, UNKNOWN
     Route: 065
  8. POTASSIUM CHLORIDE. [Concomitant]
     Active Substance: POTASSIUM CHLORIDE
     Dosage: UNK, UNKNOWN
     Route: 065
  9. FUROSEMIDE. [Concomitant]
     Active Substance: FUROSEMIDE
     Dosage: UNK, UNKNOWN
     Route: 065
  10. ESOMEPRA [Concomitant]
     Active Substance: ESOMEPRAZOLE
     Dosage: UNK, UNKNOWN
     Route: 065
  11. NEXIUM [Concomitant]
     Active Substance: ESOMEPRAZOLE MAGNESIUM
     Dosage: UNK, UNKNOWN
     Route: 065
  12. AZATHIOPRINE. [Concomitant]
     Active Substance: AZATHIOPRINE
     Dosage: UNK, UNKNOWN
     Route: 065
  13. CEFUROXIME. [Concomitant]
     Active Substance: CEFUROXIME
     Dosage: UNK, UNKNOWN
     Route: 065
  14. IPRATROPIUM/ALBUTEROL [Concomitant]
     Active Substance: ALBUTEROL\IPRATROPIUM
     Dosage: UNK, UNKNOWN
     Route: 065
  15. AZITHROMYCIN ANHYDROUS. [Concomitant]
     Active Substance: AZITHROMYCIN ANHYDROUS
     Dosage: UNK, UNKNOWN
     Route: 065
  16. AMBRISENTAN [Suspect]
     Active Substance: AMBRISENTAN
     Indication: PULMONARY HYPERTENSION
     Dosage: 10 MG, DAILY
     Route: 065
     Dates: start: 20111031
  17. MELOXICAM. [Concomitant]
     Active Substance: MELOXICAM
     Dosage: UNK, UNKNOWN
     Route: 065
  18. NIFEDICAL XL [Concomitant]
     Active Substance: NIFEDIPINE
     Dosage: UNK, UNKNOWN
     Route: 065
  19. SULFAMETHOXAZOLE AND TRIMETHOPRIM [Concomitant]
     Active Substance: SULFAMETHOXAZOLE\TRIMETHOPRIM
     Dosage: UNK, UNKNOWN
     Route: 065
  20. PROMETHAZINE [Concomitant]
     Active Substance: PROMETHAZINE\PROMETHAZINE HYDROCHLORIDE
     Dosage: UNK, UNKNOWN
     Route: 065
  21. NIFEDIPINE. [Concomitant]
     Active Substance: NIFEDIPINE
     Dosage: UNK, UNKNOWN
     Route: 065
  22. BENZONATATE. [Concomitant]
     Active Substance: BENZONATATE
     Dosage: UNK, UNKNOWN
     Route: 065
  23. MYCOPHENOLAT 1A PHARMA [Concomitant]
     Dosage: UNK, UNKNOWN
     Route: 065
  24. CARVEDILOL. [Concomitant]
     Active Substance: CARVEDILOL
     Dosage: UNK, UNKNOWN
     Route: 065

REACTIONS (1)
  - Memory impairment [Not Recovered/Not Resolved]

NARRATIVE: CASE EVENT DATE: 20180225
